FAERS Safety Report 12066020 (Version 2)
Quarter: 2016Q1

REPORT INFORMATION
  Report Type: Spontaneous
  Country: US (occurrence: US)
  Receive Date: 20160210
  Receipt Date: 20160309
  Transmission Date: 20160526
  Serious: No
  Sender: FDA-Public Use
  Company Number: US-ELI_LILLY_AND_COMPANY-US201601006382

PATIENT
  Age: 44 Year
  Sex: Male

DRUGS (4)
  1. LANTUS [Concomitant]
     Active Substance: INSULIN GLARGINE
     Dosage: 23 U, EACH EVENING
     Route: 065
  2. HUMALOG [Suspect]
     Active Substance: INSULIN LISPRO
     Indication: TYPE 2 DIABETES MELLITUS
     Dosage: 3 TIMES A DAY WITH FOOD
     Route: 065
     Dates: start: 201507
  3. HUMALOG [Suspect]
     Active Substance: INSULIN LISPRO
     Dosage: 3 TIMES A DAY WITH FOOD
     Route: 065
     Dates: start: 201507
  4. LANTUS [Concomitant]
     Active Substance: INSULIN GLARGINE
     Dosage: PER MEAL
     Route: 065

REACTIONS (2)
  - Visual impairment [Not Recovered/Not Resolved]
  - Incorrect drug administration duration [Unknown]

NARRATIVE: CASE EVENT DATE: 201507
